FAERS Safety Report 13782807 (Version 8)
Quarter: 2019Q1

REPORT INFORMATION
  Report Type: Report from Study
  Country: US (occurrence: US)
  Receive Date: 20170724
  Receipt Date: 20190121
  Transmission Date: 20190417
  Serious: Yes (Hospitalization, Other)
  Sender: FDA-Public Use
  Company Number: US-SA-2017SA102602

PATIENT
  Age: 37 Year
  Sex: Male
  Weight: 180 kg

DRUGS (6)
  1. PARACETAMOL [Concomitant]
     Active Substance: ACETAMINOPHEN
     Dosage: UNK UNK,UNK
     Route: 065
     Dates: start: 201710
  2. CIALIS [Concomitant]
     Active Substance: TADALAFIL
     Indication: RENAL DISORDER
     Dosage: 5 MG,UNK
     Route: 065
  3. IBUPROFEN. [Concomitant]
     Active Substance: IBUPROFEN
     Dosage: UNK UNK,UNK
     Route: 065
     Dates: start: 201710
  4. METHYL SALICYLATE [Concomitant]
     Active Substance: METHYL SALICYLATE
     Dosage: UNK
  5. ALEMTUZUMAB [Suspect]
     Active Substance: ALEMTUZUMAB
     Indication: MULTIPLE SCLEROSIS
     Dosage: 12 MG,QD
     Route: 041
     Dates: start: 20170522, end: 20170526
  6. MEFENAMIC ACID. [Concomitant]
     Active Substance: MEFENAMIC ACID
     Dosage: 600- 800 MG

REACTIONS (16)
  - Hypertension [Not Recovered/Not Resolved]
  - Irritability [Not Recovered/Not Resolved]
  - Pain in extremity [Not Recovered/Not Resolved]
  - Altered state of consciousness [Recovered/Resolved]
  - Progressive multiple sclerosis [Not Recovered/Not Resolved]
  - Nuclear magnetic resonance imaging abnormal [Unknown]
  - Scarlet fever [Recovered/Resolved]
  - Coma [Unknown]
  - Gait disturbance [Unknown]
  - Dental caries [Not Recovered/Not Resolved]
  - Headache [Not Recovered/Not Resolved]
  - Dyskinesia [Not Recovered/Not Resolved]
  - Asthenia [Recovered/Resolved]
  - Rash generalised [Recovered/Resolved]
  - Tachycardia [Recovered/Resolved]
  - Seizure [Unknown]

NARRATIVE: CASE EVENT DATE: 2017
